FAERS Safety Report 25626542 (Version 1)
Quarter: 2025Q3

REPORT INFORMATION
  Report Type: Spontaneous
  Country: US (occurrence: US)
  Receive Date: 20250731
  Receipt Date: 20250731
  Transmission Date: 20251021
  Serious: Yes (Hospitalization)
  Sender: KINIKSA PHARMACEUTICALS
  Company Number: US-KINIKSA PHARMACEUTICALS LTD.-2025KPU002003

PATIENT
  Sex: Female

DRUGS (3)
  1. ARCALYST [Suspect]
     Active Substance: RILONACEPT
     Indication: Pericarditis
     Dosage: UNK UNK, QW
     Dates: start: 20220513, end: 202210
  2. ARCALYST [Suspect]
     Active Substance: RILONACEPT
     Indication: Myocarditis
  3. UNSPECIFIED INGREDIENT [Concomitant]
     Active Substance: UNSPECIFIED INGREDIENT
     Indication: Product used for unknown indication

REACTIONS (5)
  - Pericarditis [Unknown]
  - Nausea [Unknown]
  - Pain [Unknown]
  - Condition aggravated [Unknown]
  - Drug ineffective [Unknown]
